FAERS Safety Report 5112508-4 (Version None)
Quarter: 2006Q3

REPORT INFORMATION
  Report Type: 
  Country: None (occurrence: None)
  Receive Date: 20060922
  Receipt Date: 20060915
  Transmission Date: 20061208
  Serious: Yes (Hospitalization, Other)
  Sender: FDA-Public Use
  Company Number: US-AVENTIS-200619579GDDC

PATIENT
  Age: 15 Year
  Sex: Female

DRUGS (2)
  1. METRONIDAZOLE [Suspect]
     Indication: VAGINAL INFECTION
  2. SULFAMETHOXAZOLE + TRIMETHOPRIM [Concomitant]
     Indication: URINARY TRACT INFECTION

REACTIONS (5)
  - AUTONOMIC NEUROPATHY [None]
  - DIARRHOEA [None]
  - ERYTHEMA [None]
  - FEELING COLD [None]
  - OEDEMA PERIPHERAL [None]
